FAERS Safety Report 7995783-8 (Version None)
Quarter: 2011Q4

REPORT INFORMATION
  Report Type: 
  Country: None (occurrence: None)
  Receive Date: 20111220
  Receipt Date: 20111213
  Transmission Date: 20120403
  Serious: Yes (Other)
  Sender: FDA-Public Use
  Company Number: PHHY2011GB108517

PATIENT
  Age: 63 Year
  Sex: Female

DRUGS (2)
  1. SULFASALAZINE [Concomitant]
     Dates: start: 20080229
  2. METHOTREXATE [Suspect]
     Dates: start: 20111101

REACTIONS (3)
  - ABDOMINAL DISCOMFORT [None]
  - PALPITATIONS [None]
  - DYSPNOEA [None]
